FAERS Safety Report 7497811-5 (Version None)
Quarter: 2011Q2

REPORT INFORMATION
  Report Type: 
  Country: None (occurrence: None)
  Receive Date: 20110524
  Receipt Date: 20110406
  Transmission Date: 20111010
  Serious: Yes (Other)
  Sender: FDA-Public Use
  Company Number: US-BAYER-2011-025507

PATIENT
  Age: 68 Year
  Sex: Female

DRUGS (2)
  1. CIPRO [Concomitant]
  2. BETAFERON [Suspect]
     Indication: MULTIPLE SCLEROSIS
     Dosage: 8 MIU, QOD
     Route: 058
     Dates: start: 20100923

REACTIONS (7)
  - DYSPNOEA [None]
  - MULTIPLE SCLEROSIS RELAPSE [None]
  - ARRHYTHMIA [None]
  - MUSCULAR WEAKNESS [None]
  - ARTERIOSCLEROSIS [None]
  - GAIT DISTURBANCE [None]
  - TACHYCARDIA [None]
